FAERS Safety Report 7471835-6 (Version None)
Quarter: 2011Q2

REPORT INFORMATION
  Report Type: 
  Country: None (occurrence: None)
  Receive Date: 20110511
  Receipt Date: 20100524
  Transmission Date: 20111010
  Serious: No
  Sender: FDA-Public Use
  Company Number: A0862354A

PATIENT
  Sex: Female

DRUGS (2)
  1. TYKERB [Suspect]
     Dosage: 1250MG PER DAY
     Route: 065
     Dates: start: 20100520
  2. CARBOPLATIN [Concomitant]
     Route: 042
     Dates: start: 20100520

REACTIONS (8)
  - ABDOMINAL PAIN [None]
  - HEADACHE [None]
  - NAUSEA [None]
  - DIARRHOEA [None]
  - BACK PAIN [None]
  - DYSPEPSIA [None]
  - BONE PAIN [None]
  - ABDOMINAL PAIN UPPER [None]
